FAERS Safety Report 9529364 (Version 1)
Quarter: 2013Q1

REPORT INFORMATION
  Report Type: Spontaneous
  Country: US (occurrence: None)
  Receive Date: 20130318
  Receipt Date: 20130318
  Transmission Date: 20140127
  Serious: Yes (Hospitalization, Other)
  Sender: FDA-Public Use
  Company Number: 1212USA000884

PATIENT
  Age: 56 Year
  Sex: Male
  Weight: 97.5 kg

DRUGS (18)
  1. PEGINTRON [Suspect]
     Indication: HEPATITIS C
     Dosage: 150 MICROGRAM/0.5 ML, QW, SUBCUTANEOUS
     Dates: start: 20121129
  2. RIBAVIRIN [Suspect]
     Indication: HEPATITIS C
     Dosage: 3 DF, QAM, ORAL
     Dates: start: 20121129
  3. VICTRELIS [Suspect]
     Indication: HEPATITIS C
     Route: 048
     Dates: start: 20130114
  4. ACCUPRIL (QUINAPRIL HYDROCHLORIDE) [Concomitant]
  5. CRESTOR (ROSUVASTATIN CALCIUM) [Concomitant]
  6. VITAMINS (UNSPECIFIED) (VITAMINS (UNSPECIFIED)) CAPSULE [Concomitant]
  7. VITAMIN D (UNSPECIFIED) (VITAMIN D (UNSPECIFIED)) CAPSULE, 1000 IU [Concomitant]
  8. NEXIUM (ESOMEPRAZOLE MAGNESIUM) CAPSULE, 20 MG [Concomitant]
  9. ASPIRIN (ASPIRIN) CHEWABLE TABLET, 81 MG [Concomitant]
  10. AMBIEN (ZOLPIDEM TARTRATE) TABLET, 10 MG [Concomitant]
  11. MELATONIN (MELATONIN) CAPSULE, 1 MG [Concomitant]
  12. TRAZODONE HYDROCHLORIDE (TRAZODONE HYDROCHLORIDE) TABLET, 100 MG [Concomitant]
  13. HOMATROPINE METHYLBROMIDE (+) HYDROCODONE BITARTRATE (HOMATROPINE METHYLBROMIDE, HYDROCODONE BITARTRATE) TABLET [Concomitant]
  14. FLONASE (FLUTICASONE PROPIONATE) , 0.05 % [Concomitant]
  15. ADVAIR (FLUTICASONE PROPIONATE, SALMETEROL XINAFOATE) INHALATION GAS [Concomitant]
  16. QUINAPRIL HYDROCHLORIDE (QUINAPRIL HYDROCHLORIDE) TABLET, 20 MG [Concomitant]
  17. PRAVASTATIN SODIUM (PRAVASTATIN SODIUM) TABLET, 10 MG [Concomitant]
  18. BENADRYL (DIPHENHYDRAMINE HYDROCHLORIDE) CAPSULE, 25 MG [Concomitant]

REACTIONS (21)
  - Macule [None]
  - Injection site rash [None]
  - Fatigue [None]
  - Injection site erythema [None]
  - Nausea [None]
  - Injection site irritation [None]
  - Stomatitis [None]
  - Mouth ulceration [None]
  - Chills [None]
  - Dysgeusia [None]
  - Decreased appetite [None]
  - Rash [None]
  - Pruritus [None]
  - Fatigue [None]
  - Haemorrhage [None]
  - Dry mouth [None]
  - Mouth ulceration [None]
  - Dyspepsia [None]
  - Gastrointestinal disorder [None]
  - Chest pain [None]
  - Gastrooesophageal reflux disease [None]
